FAERS Safety Report 14398773 (Version 1)
Quarter: 2018Q1

REPORT INFORMATION
  Report Type: Spontaneous
  Country: US (occurrence: US)
  Receive Date: 20180117
  Receipt Date: 20180117
  Transmission Date: 20180509
  Serious: No
  Sender: FDA-Public Use
  Company Number: US-LUNDBECK-DKLU2037487

PATIENT
  Sex: Male

DRUGS (2)
  1. NORTHERA [Suspect]
     Active Substance: DROXIDOPA
     Dosage: 200MG AND 300MG MAKING UP 500MG TID
     Route: 048
     Dates: start: 20170115
  2. NORTHERA [Suspect]
     Active Substance: DROXIDOPA
     Indication: BEHCET^S SYNDROME
     Dosage: 200MG AND 300MG MAKING UP 500MG TID
     Route: 048
     Dates: start: 20170115

REACTIONS (2)
  - Feeling abnormal [Unknown]
  - Therapeutic response decreased [Unknown]
